FAERS Safety Report 13326134 (Version 1)
Quarter: 2017Q1

REPORT INFORMATION
  Report Type: Other
  Country: GB (occurrence: JP)
  Receive Date: 20170310
  Receipt Date: 20170310
  Transmission Date: 20170428
  Serious: Yes (Life-Threatening, Other)
  Sender: FDA-Public Use
  Company Number: JP-INTERNATIONAL MEDICATION SYSTEMS, LIMITED-1064141

PATIENT
  Age: 21 Year
  Sex: Male
  Weight: 74 kg

DRUGS (6)
  1. OXYGEN. [Concomitant]
     Active Substance: OXYGEN
  2. LIDOCAINE 8% [Suspect]
     Active Substance: LIDOCAINE
     Route: 061
  3. SEVOFLURANE. [Suspect]
     Active Substance: SEVOFLURANE
  4. REMIFENTANIL [Suspect]
     Active Substance: REMIFENTANIL
  5. ROCURONIUM [Concomitant]
     Active Substance: ROCURONIUM BROMIDE
  6. PROPOFOL. [Suspect]
     Active Substance: PROPOFOL

REACTIONS (4)
  - Lung consolidation [Recovering/Resolving]
  - Bronchial secretion retention [Recovering/Resolving]
  - Bronchospasm [Recovering/Resolving]
  - Atelectasis [Unknown]
